FAERS Safety Report 5909647-4 (Version None)
Quarter: 2008Q4

REPORT INFORMATION
  Report Type: 
  Country: None (occurrence: None)
  Receive Date: 20081002
  Receipt Date: 20080925
  Transmission Date: 20090506
  Serious: Yes (Hospitalization)
  Sender: FDA-Public Use
  Company Number: 2008BI025302

PATIENT
  Age: 39 Year
  Sex: Female

DRUGS (2)
  1. TYSABRI [Suspect]
     Indication: MULTIPLE SCLEROSIS
     Dosage: ; IV
     Route: 042
     Dates: start: 20080304, end: 20080401
  2. AVONEX [Concomitant]

REACTIONS (6)
  - ABASIA [None]
  - BLINDNESS [None]
  - FALL [None]
  - HYPOTENSION [None]
  - MOVEMENT DISORDER [None]
  - PNEUMONIA [None]
